FAERS Safety Report 9349817 (Version 1)
Quarter: 2013Q2

REPORT INFORMATION
  Report Type: Spontaneous
  Country: AU (occurrence: None)
  Receive Date: 20130611
  Receipt Date: 20130611
  Transmission Date: 20140414
  Serious: Yes (Hospitalization, Other)
  Sender: FDA-Public Use
  Company Number: 2013000127

PATIENT
  Age: 71 Year
  Sex: Female

DRUGS (4)
  1. ACEON (PERINDOPRIL ERBUMINE) TABLET [Suspect]
     Indication: HYPERTENSION
     Route: 048
     Dates: start: 201304
  2. ACEON (PERINDOPRIL ERBUMINE) TABLET [Suspect]
     Indication: HYPERTENSION
     Route: 048
     Dates: start: 201304
  3. CENTUM (MINERALS NOS, VITAMINS NOS) [Concomitant]
  4. SOTALOL [Concomitant]

REACTIONS (3)
  - Drug ineffective [None]
  - Hypertension [None]
  - Heart rate irregular [None]
